FAERS Safety Report 11349885 (Version 1)
Quarter: 2015Q3

REPORT INFORMATION
  Report Type: Spontaneous
  Country: US (occurrence: None)
  Receive Date: 20150805
  Receipt Date: 20150805
  Transmission Date: 20151125
  Serious: No
  Sender: FDA-Public Use
  Company Number: None

PATIENT
  Age: 53 Year
  Sex: Male

DRUGS (19)
  1. AMLODIPINE [Concomitant]
     Active Substance: AMLODIPINE BESYLATE
  2. CLONIDINE. [Concomitant]
     Active Substance: CLONIDINE
  3. NICOTINE. [Concomitant]
     Active Substance: NICOTINE
  4. FENTANYL. [Suspect]
     Active Substance: FENTANYL
     Indication: PAIN
     Route: 042
     Dates: start: 20141214, end: 20141218
  5. CEFEPIME [Concomitant]
     Active Substance: CEFEPIME HYDROCHLORIDE
  6. MYULTIVITAMIN [Concomitant]
  7. VANCOMYCIN [Concomitant]
     Active Substance: VANCOMYCIN
  8. ALBUTEROL/IPRATROPIUM [Concomitant]
     Active Substance: ALBUTEROL\IPRATROPIUM
  9. ENOXAPARIN [Concomitant]
     Active Substance: ENOXAPARIN
  10. RISPERIDONE. [Concomitant]
     Active Substance: RISPERIDONE
  11. LEVOTHYROXINE. [Concomitant]
     Active Substance: LEVOTHYROXINE
  12. PANCREALIPASE [Concomitant]
     Active Substance: PANCRELIPASE
  13. ASPIRIN. [Concomitant]
     Active Substance: ASPIRIN
  14. EMOLLENT CREAM [Concomitant]
  15. LISINOPRIL. [Concomitant]
     Active Substance: LISINOPRIL
  16. NEOSPORIN [Concomitant]
     Active Substance: BACITRACIN ZINC\NEOMYCIN SULFATE\POLYMYXIN B SULFATE
  17. FOLIC ACID. [Concomitant]
     Active Substance: FOLIC ACID
  18. LACTULOSE. [Concomitant]
     Active Substance: LACTULOSE
  19. THIAMINE. [Concomitant]
     Active Substance: THIAMINE

REACTIONS (1)
  - Unresponsive to stimuli [None]

NARRATIVE: CASE EVENT DATE: 20141216
